FAERS Safety Report 7914220-2 (Version None)
Quarter: 2011Q4

REPORT INFORMATION
  Report Type: 
  Country: None (occurrence: None)
  Receive Date: 20111114
  Receipt Date: 20111114
  Transmission Date: 20120403
  Serious: No
  Sender: FDA-Public Use
  Company Number: None

PATIENT
  Sex: Female
  Weight: 58.0604 kg

DRUGS (2)
  1. GIANVI TEVA [Suspect]
     Indication: MENSTRUAL CYCLE MANAGEMENT
     Dosage: 1 DAILY BY MOUTH
     Route: 048
  2. GIANVI TEVA [Suspect]
     Indication: CONTRACEPTION
     Dosage: 1 DAILY BY MOUTH
     Route: 048

REACTIONS (2)
  - METRORRHAGIA [None]
  - PRODUCT SUBSTITUTION ISSUE [None]
